FAERS Safety Report 6732770-1 (Version None)
Quarter: 2010Q2

REPORT INFORMATION
  Report Type: 
  Country: None (occurrence: None)
  Receive Date: 20100519
  Receipt Date: 20100506
  Transmission Date: 20101027
  Serious: Yes (Hospitalization)
  Sender: FDA-Public Use
  Company Number: JP-AMGEN-QUU412509

PATIENT
  Age: 37 Year
  Sex: Female

DRUGS (4)
  1. ENBREL [Suspect]
     Indication: RHEUMATOID ARTHRITIS
     Dosage: UNSPECIFIED
     Route: 058
  2. SALAZOSULFAPYRIDINE [Concomitant]
     Dosage: UNSPECIFIED
     Route: 048
     Dates: start: 20060101
  3. PREDNISOLONE [Concomitant]
     Route: 048
  4. RHEUMATREX [Concomitant]
     Dosage: UNSPECIFIED; DOSE OF MTX INCREASED TO 14 MG/WEEK
     Route: 048
     Dates: start: 20060101

REACTIONS (1)
  - PANCYTOPENIA [None]
